FAERS Safety Report 6387413-6 (Version None)
Quarter: 2009Q3

REPORT INFORMATION
  Report Type: 
  Country: None (occurrence: None)
  Receive Date: 20090930
  Receipt Date: 20090921
  Transmission Date: 20100115
  Serious: Yes (Hospitalization)
  Sender: FDA-Public Use
  Company Number: 231090J09USA

PATIENT
  Age: 29 Year
  Sex: Female
  Weight: 119 kg

DRUGS (5)
  1. REBIF [Suspect]
     Indication: MULTIPLE SCLEROSIS
     Dosage: 44 MCG, 3 IN 1 WEEKS, SUBCUTANEOUS
     Route: 058
     Dates: start: 20090317
  2. LYRICA [Concomitant]
  3. AMITRIPTYLINE HCL [Concomitant]
  4. EFFEXOR [Concomitant]
  5. NORCO [Concomitant]

REACTIONS (3)
  - GAIT DISTURBANCE [None]
  - OEDEMA PERIPHERAL [None]
  - OSTEOARTHRITIS [None]
